FAERS Safety Report 9707902 (Version 1)
Quarter: 2013Q4

REPORT INFORMATION
  Report Type: Spontaneous
  Country: UM (occurrence: US)
  Receive Date: 20131125
  Receipt Date: 20131125
  Transmission Date: 20140711
  Serious: No
  Sender: FDA-Public Use
  Company Number: UM-PFIZER INC-2013334874

PATIENT
  Age: 62 Year
  Sex: Male
  Weight: 74.83 kg

DRUGS (1)
  1. LYRICA [Suspect]
     Indication: NEUROPATHY PERIPHERAL
     Dosage: UNK
     Dates: start: 201311, end: 20131118

REACTIONS (1)
  - Anaemia [Unknown]
